FAERS Safety Report 16031329 (Version 1)
Quarter: 2019Q1

REPORT INFORMATION
  Report Type: Spontaneous
  Country: GR (occurrence: GR)
  Receive Date: 20190304
  Receipt Date: 20190304
  Transmission Date: 20190418
  Serious: Yes (Other)
  Sender: FDA-Public Use
  Company Number: GR-SA-2019SA060648

PATIENT
  Sex: Female

DRUGS (5)
  1. BROMAZEPAM [Suspect]
     Active Substance: BROMAZEPAM
     Dosage: 0.25 DF, QD
     Route: 065
  2. BROMAZEPAM [Suspect]
     Active Substance: BROMAZEPAM
     Dosage: 0.5 DF, QD
     Route: 065
  3. BROMAZEPAM [Suspect]
     Active Substance: BROMAZEPAM
     Indication: HERPES ZOSTER
     Dosage: 1.5 MG, QD (1 TAB PER DAY)
     Route: 065
  4. BROMAZEPAM [Suspect]
     Active Substance: BROMAZEPAM
     Dosage: 0.5 DF, QD
     Route: 065
  5. LEVOCETIRIZINE [Suspect]
     Active Substance: LEVOCETIRIZINE
     Indication: PRURITUS
     Dosage: UNK UNK, UNK
     Route: 065

REACTIONS (1)
  - Bradycardia [Recovered/Resolved]
